FAERS Safety Report 6218261-5 (Version None)
Quarter: 2009Q2

REPORT INFORMATION
  Report Type: 
  Country: None (occurrence: None)
  Receive Date: 20090608
  Receipt Date: 20090528
  Transmission Date: 20091009
  Serious: Yes (Hospitalization)
  Sender: FDA-Public Use
  Company Number: US-BIOGENIDEC-2009BI013741

PATIENT
  Age: 48 Year
  Sex: Male

DRUGS (3)
  1. AVONEX [Suspect]
     Indication: MULTIPLE SCLEROSIS
     Route: 030
     Dates: start: 20070417, end: 20081215
  2. AVONEX [Suspect]
     Route: 030
     Dates: start: 20090503
  3. PSYCH MEDS (NOS) [Concomitant]

REACTIONS (2)
  - DEPRESSION [None]
  - FAILURE TO THRIVE [None]
